FAERS Safety Report 6519302-8 (Version None)
Quarter: 2009Q4

REPORT INFORMATION
  Report Type: 
  Country: None (occurrence: None)
  Receive Date: 20091224
  Receipt Date: 20091224
  Transmission Date: 20100525
  Serious: Yes (Hospitalization)
  Sender: FDA-Public Use
  Company Number: None

PATIENT
  Sex: Male
  Weight: 128.4 kg

DRUGS (2)
  1. MERCAPTOPURINE [Suspect]
     Dosage: 200 MG
  2. METHOTREXATE [Suspect]
     Dosage: 50 MG

REACTIONS (1)
  - FEBRILE NEUTROPENIA [None]
